FAERS Safety Report 4463797-0 (Version None)
Quarter: 2004Q3

REPORT INFORMATION
  Report Type: 
  Country: None (occurrence: None)
  Receive Date: 20040929
  Receipt Date: 20040915
  Transmission Date: 20050211
  Serious: Yes (Hospitalization)
  Sender: FDA-Public Use
  Company Number: 238610

PATIENT
  Age: 68 Year

DRUGS (8)
  1. NOVONORM(REPAGLINIDE) TABLET, 2.0MG [Suspect]
     Indication: DIABETES MELLITUS NON-INSULIN-DEPENDENT
     Dosage: 8 MG, PER ORAL
     Route: 048
     Dates: start: 20030601
  2. ALDACTIDE (HYDROFLUMETHAZIDE, SPIRONOLACTONE) [Concomitant]
  3. VASOBRAL (CAFFEINE, DIHYDROERGOCRYPTINE MESILATE) [Concomitant]
  4. ACTOS ^LILLY^ [Concomitant]
  5. SERETIDE ^ALLEN + HANBURYS LTD^ (FLUTICASONE PROPIONATE, SALMETEROL) [Concomitant]
  6. LIPANTHYL ^BRISTOL-MYERS SQUIBB^ (FENOFIBRATE) [Concomitant]
  7. XALATAN [Concomitant]
  8. AMOXCILINA (AMOXICILLIN) [Concomitant]

REACTIONS (2)
  - LEUKOCYTOCLASTIC VASCULITIS [None]
  - SKIN NECROSIS [None]
